FAERS Safety Report 11080888 (Version 1)
Quarter: 2015Q2

REPORT INFORMATION
  Report Type: Spontaneous
  Country: None (occurrence: None)
  Receive Date: 20150430
  Receipt Date: 20150430
  Transmission Date: 20150821
  Serious: Yes (Disabling)
  Sender: FDA-Public Use
  Company Number: None

PATIENT
  Age: 21 Year
  Sex: Female

DRUGS (2)
  1. ONE A DAY VITAMINS [Concomitant]
  2. TERBUTALINE [Suspect]
     Active Substance: TERBUTALINE
     Indication: PREMATURE LABOUR
     Dates: start: 19880528, end: 19880706

REACTIONS (4)
  - Maternal drugs affecting foetus [None]
  - Anxiety [None]
  - Job dissatisfaction [None]
  - Depression [None]

NARRATIVE: CASE EVENT DATE: 19880528
